FAERS Safety Report 4469357-X (Version None)
Quarter: 2004Q4

REPORT INFORMATION
  Report Type: 
  Country: None (occurrence: None)
  Receive Date: 20041008
  Receipt Date: 20040217
  Transmission Date: 20050328
  Serious: No
  Sender: FDA-Public Use
  Company Number: US-BRISTOL-MYERS SQUIBB COMPANY-12508982

PATIENT
  Age: 66 Year
  Sex: Female
  Weight: 60 kg

DRUGS (5)
  1. AVAPRO [Suspect]
     Indication: HYPERTENSION
     Route: 048
     Dates: start: 20030801
  2. TOPROL-XL [Concomitant]
  3. LEVOXYL [Concomitant]
  4. MULTI-VITAMIN [Concomitant]
  5. CALCIUM + VITAMIN D [Concomitant]

REACTIONS (1)
  - ALOPECIA [None]
